FAERS Safety Report 15901352 (Version 1)
Quarter: 2019Q1

REPORT INFORMATION
  Report Type: Spontaneous
  Country: IT (occurrence: IT)
  Receive Date: 20190201
  Receipt Date: 20190201
  Transmission Date: 20190417
  Serious: Yes (Other)
  Sender: FDA-Public Use
  Company Number: IT-TEVA-2019-IT-1006879

PATIENT
  Age: 43 Year
  Sex: Male

DRUGS (2)
  1. AMOXICILLIN. [Suspect]
     Active Substance: AMOXICILLIN
     Indication: ANTIBIOTIC THERAPY
     Route: 048
  2. OKI [Suspect]
     Active Substance: KETOPROFEN LYSINE
     Indication: ANTIINFLAMMATORY THERAPY
     Route: 048
     Dates: start: 20190108, end: 20190108

REACTIONS (2)
  - Hypersensitivity [Recovering/Resolving]
  - Face oedema [Recovering/Resolving]

NARRATIVE: CASE EVENT DATE: 20190108
